FAERS Safety Report 23236272 (Version 3)
Quarter: 2024Q1

REPORT INFORMATION
  Report Type: Report from Study
  Country: MX (occurrence: MX)
  Receive Date: 20231128
  Receipt Date: 20240308
  Transmission Date: 20240409
  Serious: Yes (Life-Threatening, Other)
  Sender: FDA-Public Use
  Company Number: MX-002147023-NVSC2022MX241558

PATIENT
  Sex: Female
  Weight: 77 kg

DRUGS (9)
  1. KISQALI [Interacting]
     Active Substance: RIBOCICLIB
     Indication: Breast cancer
     Dosage: UNK
     Route: 048
     Dates: start: 202205
  2. KISQALI [Interacting]
     Active Substance: RIBOCICLIB
     Dosage: UNK
     Route: 048
     Dates: start: 202206
  3. KISQALI [Interacting]
     Active Substance: RIBOCICLIB
     Dosage: 600 MG, QD
     Route: 048
     Dates: start: 20220712
  4. KISQALI [Interacting]
     Active Substance: RIBOCICLIB
     Dosage: UNK
     Route: 048
  5. KISQALI [Interacting]
     Active Substance: RIBOCICLIB
     Dosage: 2 DOSAGE FORM, QD
     Route: 048
  6. KISQALI [Interacting]
     Active Substance: RIBOCICLIB
     Dosage: UNK
     Route: 048
  7. ANASTROZOLE [Suspect]
     Active Substance: ANASTROZOLE
     Indication: Breast cancer
     Dosage: UNK
     Route: 065
  8. CANNABIS SATIVA SUBSP. INDICA TOP [Concomitant]
     Active Substance: CANNABIS SATIVA SUBSP. INDICA TOP
     Indication: Product used for unknown indication
     Dosage: UNK
     Route: 065
  9. CHLORPHENIRAMINE MALEATE [Concomitant]
     Active Substance: CHLORPHENIRAMINE MALEATE
     Indication: Somnolence
     Dosage: UNK
     Route: 065

REACTIONS (60)
  - Feeling abnormal [Unknown]
  - Poisoning [Unknown]
  - Metastases to bone [Unknown]
  - Metastasis [Unknown]
  - Fear [Unknown]
  - Urticaria [Unknown]
  - Rash erythematous [Unknown]
  - Weight fluctuation [Unknown]
  - Weight decreased [Unknown]
  - Bone pain [Unknown]
  - Insomnia [Not Recovered/Not Resolved]
  - Pollakiuria [Not Recovered/Not Resolved]
  - Irritability [Unknown]
  - Malaise [Unknown]
  - Tumour pain [Unknown]
  - Discomfort [Unknown]
  - Stress [Unknown]
  - Anxiety [Unknown]
  - Swelling [Unknown]
  - Pain in extremity [Recovered/Resolved]
  - Pain [Unknown]
  - Inflammation [Unknown]
  - Skin hypertrophy [Not Recovered/Not Resolved]
  - Thirst [Recovered/Resolved]
  - Dehydration [Unknown]
  - Flatulence [Unknown]
  - Dyspepsia [Unknown]
  - Fatigue [Unknown]
  - Dysgeusia [Unknown]
  - Erythema [Unknown]
  - Dry skin [Not Recovered/Not Resolved]
  - Pruritus [Unknown]
  - Gastric infection [Unknown]
  - Abdominal pain [Unknown]
  - Asthenia [Unknown]
  - Diarrhoea [Recovered/Resolved]
  - Vomiting [Unknown]
  - Emotional disorder [Unknown]
  - Neoplasm [Unknown]
  - Mood altered [Unknown]
  - Weight increased [Unknown]
  - Feeling abnormal [Unknown]
  - Wound complication [Unknown]
  - Abdominal distension [Unknown]
  - Constipation [Recovered/Resolved]
  - Mania [Unknown]
  - Lip injury [Unknown]
  - Rash [Unknown]
  - Chest pain [Unknown]
  - Frustration tolerance decreased [Unknown]
  - Labelled drug-food interaction issue [Unknown]
  - Pain in extremity [Unknown]
  - Influenza [Unknown]
  - Oropharyngeal pain [Unknown]
  - Oropharyngeal discomfort [Unknown]
  - Feeding disorder [Unknown]
  - Confusional state [Unknown]
  - Injury [Unknown]
  - Fall [Unknown]
  - Spinal cord injury [Unknown]

NARRATIVE: CASE EVENT DATE: 20220101
